FAERS Safety Report 7836111-8 (Version None)
Quarter: 2011Q4

REPORT INFORMATION
  Report Type: 
  Country: None (occurrence: None)
  Receive Date: 20111024
  Receipt Date: 20101116
  Transmission Date: 20120403
  Serious: No
  Sender: FDA-Public Use
  Company Number: US-ABBOTT-10P-163-0683172-00

PATIENT
  Sex: Female

DRUGS (1)
  1. LUPRON DEPOT [Suspect]
     Indication: PRODUCT USED FOR UNKNOWN INDICATION

REACTIONS (21)
  - FEELING ABNORMAL [None]
  - IRRITABILITY [None]
  - MOOD SWINGS [None]
  - LACK OF SATIETY [None]
  - MIDDLE INSOMNIA [None]
  - INSOMNIA [None]
  - FEELING COLD [None]
  - HOT FLUSH [None]
  - FLUSHING [None]
  - FEELING HOT [None]
  - SKIN BURNING SENSATION [None]
  - HUNGER [None]
  - DEPRESSED MOOD [None]
  - ANGER [None]
  - HYPERHIDROSIS [None]
  - WEIGHT INCREASED [None]
  - DEPRESSION [None]
  - ANXIETY [None]
  - COLD SWEAT [None]
  - ASTHENIA [None]
  - FATIGUE [None]
